FAERS Safety Report 17572101 (Version 1)
Quarter: 2020Q1

REPORT INFORMATION
  Report Type: Spontaneous
  Country: US (occurrence: US)
  Receive Date: 20200322
  Receipt Date: 20200322
  Transmission Date: 20200409
  Serious: No
  Sender: FDA-Public Use
  Company Number: None

PATIENT
  Age: 74 Year
  Sex: Female
  Weight: 59.4 kg

DRUGS (13)
  1. NAC [Concomitant]
     Active Substance: ACETYLCYSTEINE
  2. FORMULA 303 [Concomitant]
     Active Substance: MAGNESIUM\PASSIFLORA INCARNATA FLOWER\VALERIAN
  3. SPIRIVA [Suspect]
     Active Substance: TIOTROPIUM BROMIDE MONOHYDRATE
     Indication: CHRONIC OBSTRUCTIVE PULMONARY DISEASE
  4. VITAMIN D3 [Concomitant]
     Active Substance: CHOLECALCIFEROL
  5. ALA [Concomitant]
  6. MILK THISTLE [Concomitant]
     Active Substance: DIETARY SUPPLEMENT\HERBALS\MILK THISTLE
  7. XANAX [Concomitant]
     Active Substance: ALPRAZOLAM
  8. VITAMIN B COMPLEX [Concomitant]
     Active Substance: CYANOCOBALAMIN\DEXPANTHENOL\NIACINAMIDE\PYRIDOXINE HYDROCHLORIDE\RIBOFLAVIN 5^-PHOSPHATE SODIUM\THIAMINE HYDROCHLORIDE\VITAMIN B COMPLEX
  9. IODINE. [Concomitant]
     Active Substance: IODINE
  10. ADVIL [Concomitant]
     Active Substance: IBUPROFEN
  11. BREO ELLIPTA [Concomitant]
     Active Substance: FLUTICASONE FUROATE\VILANTEROL TRIFENATATE
  12. MINERAL COMPLEX [Concomitant]
  13. BIOTIN [Concomitant]
     Active Substance: BIOTIN

REACTIONS (7)
  - Gastrooesophageal reflux disease [None]
  - Insomnia [None]
  - Gingivitis [None]
  - Back pain [None]
  - Trismus [None]
  - Chest pain [None]
  - Costochondritis [None]
